FAERS Safety Report 7586520-X (Version None)
Quarter: 2011Q3

REPORT INFORMATION
  Report Type: 
  Country: None (occurrence: None)
  Receive Date: 20110701
  Receipt Date: 20110622
  Transmission Date: 20111222
  Serious: Yes (Death)
  Sender: FDA-Public Use
  Company Number: FR-ROCHE-785152

PATIENT
  Age: 42 Year
  Sex: Male

DRUGS (2)
  1. BEVACIZUMAB [Suspect]
     Indication: COLORECTAL CANCER
     Route: 065
  2. CAPECITABINE [Concomitant]
     Indication: COLORECTAL CANCER

REACTIONS (1)
  - PNEUMOTHORAX [None]
